FAERS Safety Report 7319558-8 (Version None)
Quarter: 2011Q1

REPORT INFORMATION
  Report Type: 
  Country: None (occurrence: None)
  Receive Date: 20110228
  Receipt Date: 20100519
  Transmission Date: 20110831
  Serious: No
  Sender: FDA-Public Use
  Company Number: A0860425A

PATIENT
  Sex: Male

DRUGS (2)
  1. AMBIEN [Concomitant]
  2. LAMICTAL [Suspect]
     Indication: BIPOLAR DISORDER
     Dosage: 75MG PER DAY
     Route: 048
     Dates: start: 20080101

REACTIONS (3)
  - PERIODONTAL DISEASE [None]
  - DENTAL CARIES [None]
  - BONE DENSITY DECREASED [None]
